FAERS Safety Report 20029713 (Version 2)
Quarter: 2021Q4

REPORT INFORMATION
  Report Type: Spontaneous
  Country: US (occurrence: US)
  Receive Date: 20211103
  Receipt Date: 20211126
  Transmission Date: 20220304
  Serious: No
  Sender: FDA-Public Use
  Company Number: US-GLAXOSMITHKLINE-US2021224157

PATIENT
  Age: 85 Year
  Sex: Male

DRUGS (2)
  1. TRELEGY ELLIPTA [Suspect]
     Active Substance: FLUTICASONE FUROATE\UMECLIDINIUM BROMIDE\VILANTEROL TRIFENATATE
     Indication: Chronic obstructive pulmonary disease
     Dosage: UNK, 100/62.5/25MCG INH 30
     Dates: start: 20210915, end: 20211020
  2. VERAPAMIL [Suspect]
     Active Substance: VERAPAMIL HYDROCHLORIDE
     Indication: Heart rate abnormal
     Dosage: UNK
     Dates: start: 202110

REACTIONS (3)
  - Dyspnoea [Unknown]
  - Gait disturbance [Recovering/Resolving]
  - Heart rate abnormal [Unknown]

NARRATIVE: CASE EVENT DATE: 20210815
